FAERS Safety Report 24307527 (Version 1)
Quarter: 2024Q3

REPORT INFORMATION
  Report Type: Report from Study
  Country: US (occurrence: US)
  Receive Date: 20240911
  Receipt Date: 20240911
  Transmission Date: 20241017
  Serious: Yes (Other)
  Sender: OTSUKA
  Company Number: US-OTSUKA-2024_020730

PATIENT
  Age: 33 Year
  Sex: Female
  Weight: 109.3 kg

DRUGS (3)
  1. TOLVAPTAN [Suspect]
     Active Substance: TOLVAPTAN
     Indication: Congenital cystic kidney disease
     Dosage: 45 MG, QD (MORNING)
     Route: 048
  2. TOLVAPTAN [Suspect]
     Active Substance: TOLVAPTAN
     Dosage: 15 MG, QD (EVENING)
     Route: 048
  3. LISINOPRIL [Concomitant]
     Active Substance: LISINOPRIL
     Indication: Product used for unknown indication
     Dosage: 2 DF, QD (40 MG)
     Route: 048
     Dates: start: 20231117

REACTIONS (13)
  - Renal impairment [Unknown]
  - Renal cyst [Unknown]
  - Illness [Recovered/Resolved]
  - Mean cell volume abnormal [Unknown]
  - Hypertension [Unknown]
  - Vomiting [Recovered/Resolved]
  - Back pain [Unknown]
  - Nausea [Unknown]
  - Dyspnoea [Unknown]
  - Polydipsia [Unknown]
  - Fatigue [Unknown]
  - Palpitations [Unknown]
  - Decreased appetite [Unknown]

NARRATIVE: CASE EVENT DATE: 20231219
